FAERS Safety Report 11492442 (Version 2)
Quarter: 2016Q2

REPORT INFORMATION
  Report Type: Spontaneous
  Country: DE (occurrence: DE)
  Receive Date: 20150910
  Receipt Date: 20160427
  Transmission Date: 20160815
  Serious: Yes (Life-Threatening)
  Sender: FDA-Public Use
  Company Number: DE-RARE DISEASE THERAPEUTICS, INC.-1041823

PATIENT
  Age: 67 Year
  Sex: Male

DRUGS (4)
  1. IDARUBICIN HYDROCHLORIDE. [Suspect]
     Active Substance: IDARUBICIN HYDROCHLORIDE
     Dates: start: 2009, end: 2010
  2. PURIXAN [Suspect]
     Active Substance: MERCAPTOPURINE
     Indication: ACUTE PROMYELOCYTIC LEUKAEMIA
     Dates: start: 2010, end: 2012
  3. TRETINOIN. [Suspect]
     Active Substance: TRETINOIN
     Dates: start: 2009, end: 2010
  4. METHOTREXATE (METHOTREXATE SODIUM) [Suspect]
     Active Substance: METHOTREXATE SODIUM
     Dates: start: 20100101, end: 20120102

REACTIONS (2)
  - Aplastic anaemia [Unknown]
  - Myelodysplastic syndrome [Unknown]

NARRATIVE: CASE EVENT DATE: 201504
